FAERS Safety Report 6964649-4 (Version None)
Quarter: 2010Q3

REPORT INFORMATION
  Report Type: 
  Country: None (occurrence: None)
  Receive Date: 20100903
  Receipt Date: 20100826
  Transmission Date: 20110219
  Serious: Yes (Other)
  Sender: FDA-Public Use
  Company Number: US-ASTRAZENECA-2009UW01236

PATIENT
  Age: 704 Month
  Sex: Female
  Weight: 71.2 kg

DRUGS (6)
  1. SEROQUEL [Suspect]
     Indication: ANXIETY
     Route: 048
     Dates: start: 20070401, end: 20080201
  2. SEROQUEL [Suspect]
     Indication: DEPRESSION
     Route: 048
     Dates: start: 20070401, end: 20080201
  3. SEROQUEL [Suspect]
     Indication: BIPOLAR DISORDER
     Route: 048
     Dates: start: 20070401, end: 20080201
  4. SEROQUEL [Suspect]
     Route: 048
     Dates: start: 20070717
  5. SEROQUEL [Suspect]
     Route: 048
     Dates: start: 20070717
  6. SEROQUEL [Suspect]
     Route: 048
     Dates: start: 20070717

REACTIONS (2)
  - DIABETES MELLITUS [None]
  - NEUROPATHY PERIPHERAL [None]
